FAERS Safety Report 20874880 (Version 1)
Quarter: 2022Q2

REPORT INFORMATION
  Report Type: Report from Study
  Country: US (occurrence: US)
  Receive Date: 20220526
  Receipt Date: 20220526
  Transmission Date: 20220721
  Serious: Yes (Hospitalization, Other)
  Sender: FDA-Public Use
  Company Number: US-GILEAD-2022-0582701

PATIENT
  Sex: Male

DRUGS (23)
  1. AZTREONAM LYSINE [Suspect]
     Active Substance: AZTREONAM LYSINE
     Indication: Bacterial infection
     Dosage: 75 MG, TID FOR 10 DAYS
     Route: 055
     Dates: start: 202011
  2. AZTREONAM LYSINE [Suspect]
     Active Substance: AZTREONAM LYSINE
     Indication: Aspergillus infection
     Dosage: 75 MG, QD CYCLING 14 DAYS ON AND 14 DAYS OFF
     Route: 055
  3. GABAPENTIN [Concomitant]
     Active Substance: GABAPENTIN
  4. PFIZER-BIONTECH COVID-19 VACCINE [Concomitant]
     Active Substance: TOZINAMERAN
  5. MAGNESIUM [Concomitant]
     Active Substance: MAGNESIUM
  6. COREG [Concomitant]
     Active Substance: CARVEDILOL
  7. TACROLIMUS [Concomitant]
     Active Substance: TACROLIMUS
  8. PRAVASTATIN [Concomitant]
     Active Substance: PRAVASTATIN
  9. METHYLPREDNISOLONE [Concomitant]
     Active Substance: METHYLPREDNISOLONE
  10. ASPIRIN [Concomitant]
     Active Substance: ASPIRIN
  11. PANTOPRAZOLE [Concomitant]
     Active Substance: PANTOPRAZOLE
  12. LISINOPRIL [Concomitant]
     Active Substance: LISINOPRIL
  13. ATROVENT [Concomitant]
     Active Substance: IPRATROPIUM BROMIDE
  14. IRON [Concomitant]
     Active Substance: IRON
  15. AZITHROMYCIN [Concomitant]
     Active Substance: AZITHROMYCIN
  16. LASIX [Concomitant]
     Active Substance: FUROSEMIDE
  17. TOLSURA [Concomitant]
     Active Substance: ITRACONAZOLE
  18. VITAMINS NOS [Concomitant]
     Active Substance: VITAMINS
  19. VITAMIN D2 [Concomitant]
     Active Substance: ERGOCALCIFEROL
  20. PREDNISONE [Concomitant]
     Active Substance: PREDNISONE
  21. SERTRALINE [Concomitant]
     Active Substance: SERTRALINE HYDROCHLORIDE
  22. POTASSIUM CITRATE [Concomitant]
     Active Substance: POTASSIUM CITRATE
  23. FISH OIL [Concomitant]
     Active Substance: FISH OIL

REACTIONS (4)
  - Immunodeficiency [Not Recovered/Not Resolved]
  - Lung transplant [Unknown]
  - Pneumonia [Unknown]
  - Off label use [Unknown]
